FAERS Safety Report 24257963 (Version 1)
Quarter: 2024Q3

REPORT INFORMATION
  Report Type: Other
  Country: US (occurrence: US)
  Receive Date: 20240828
  Receipt Date: 20240828
  Transmission Date: 20241016
  Serious: Yes (Life-Threatening)
  Sender: B BRAUN
  Company Number: US-B.Braun Medical Inc.-2160922

PATIENT
  Age: 53 Year
  Sex: Female

DRUGS (5)
  1. HEPARIN SODIUM IN DEXTROSE [Suspect]
     Active Substance: HEPARIN SODIUM
     Indication: Pulmonary embolism
  2. HEPARIN SODIUM IN DEXTROSE [Suspect]
     Active Substance: HEPARIN SODIUM
     Indication: Anticoagulant therapy
  3. MEROPENEM [Concomitant]
     Active Substance: MEROPENEM
  4. RIVAROXABAN [Concomitant]
     Active Substance: RIVAROXABAN
  5. LINEZOLID [Concomitant]
     Active Substance: LINEZOLID

REACTIONS (1)
  - Drug ineffective [Unknown]
